FAERS Safety Report 25246337 (Version 2)
Quarter: 2025Q2

REPORT INFORMATION
  Report Type: Report from Study
  Country: US (occurrence: US)
  Receive Date: 20250428
  Receipt Date: 20250506
  Transmission Date: 20250716
  Serious: Yes (Other)
  Sender: ABBVIE
  Company Number: US-ABBVIE-6252124

PATIENT
  Age: 55 Year
  Sex: Female
  Weight: 112 kg

DRUGS (3)
  1. BOTOX [Suspect]
     Active Substance: ONABOTULINUMTOXINA
     Indication: Hypertonic bladder
     Route: 030
     Dates: start: 2019, end: 2019
  2. BUPROPION [Concomitant]
     Active Substance: BUPROPION
     Indication: Depression
  3. SERTRALINE [Concomitant]
     Active Substance: SERTRALINE HYDROCHLORIDE
     Indication: Hot flush

REACTIONS (7)
  - Tendon rupture [Recovering/Resolving]
  - Ligament sprain [Recovering/Resolving]
  - Cartilage injury [Recovering/Resolving]
  - Osteoarthritis [Recovering/Resolving]
  - Fall [Recovering/Resolving]
  - Bursitis [Recovering/Resolving]
  - Tendon injury [Recovering/Resolving]

NARRATIVE: CASE EVENT DATE: 20250307
